FAERS Safety Report 15951264 (Version 2)
Quarter: 2019Q1

REPORT INFORMATION
  Report Type: Spontaneous
  Country: FR (occurrence: FR)
  Receive Date: 20190212
  Receipt Date: 20190215
  Transmission Date: 20190417
  Serious: Yes (Life-Threatening, Hospitalization, Other)
  Sender: FDA-Public Use
  Company Number: FR-PFIZER INC-2019057685

PATIENT
  Age: 22 Year
  Sex: Female

DRUGS (8)
  1. ROVAMYCINE [SPIRAMYCIN] [Concomitant]
     Active Substance: SPIRAMYCIN
     Indication: EVIDENCE BASED TREATMENT
     Dosage: UNK
  2. OXYGEN. [Concomitant]
     Active Substance: OXYGEN
     Indication: RESPIRATORY DISTRESS
     Dosage: 6 L, UNK (INCREASED TO 6 L/MIN)
  3. PIPERACILLIN AND TAZOBACTAM [Concomitant]
     Active Substance: PIPERACILLIN SODIUM\TAZOBACTAM SODIUM
     Indication: BACTERIAL INFECTION
     Dosage: UNK
  4. CLINDAMYCIN. [Concomitant]
     Active Substance: CLINDAMYCIN
     Indication: BACTERIAL INFECTION
     Dosage: UNK
  5. OSELTAMIVIR [Concomitant]
     Active Substance: OSELTAMIVIR
     Indication: EVIDENCE BASED TREATMENT
     Dosage: UNK
  6. CEFOTAXIME [Concomitant]
     Active Substance: CEFOTAXIME SODIUM
     Indication: EVIDENCE BASED TREATMENT
     Dosage: UNK
  7. NOREPINEPHRINE BITARTRATE. [Suspect]
     Active Substance: NOREPINEPHRINE BITARTRATE
     Indication: HYPOTENSION
     Dosage: 2.8 UG/KG, UNK (2.8 ?G/KG/MIN)
  8. AMIKACIN. [Concomitant]
     Active Substance: AMIKACIN
     Indication: BACTERIAL INFECTION
     Dosage: UNK

REACTIONS (2)
  - Shock [Not Recovered/Not Resolved]
  - Blood lactic acid increased [Not Recovered/Not Resolved]
